FAERS Safety Report 7802654-6 (Version None)
Quarter: 2011Q4

REPORT INFORMATION
  Report Type: 
  Country: None (occurrence: None)
  Receive Date: 20111007
  Receipt Date: 20110926
  Transmission Date: 20120403
  Serious: Yes (Other)
  Sender: FDA-Public Use
  Company Number: PHHY2011GB87236

PATIENT

DRUGS (2)
  1. CYCLOSPORINE [Suspect]
     Route: 065
  2. EXJADE [Suspect]
     Indication: APLASIA PURE RED CELL
     Route: 065

REACTIONS (6)
  - PANCYTOPENIA [None]
  - BRONCHITIS [None]
  - PYREXIA [None]
  - RENAL FAILURE CHRONIC [None]
  - BLOOD CREATININE INCREASED [None]
  - EPSTEIN-BARR VIRUS ASSOCIATED LYMPHOPROLIFERATIVE DISORDER [None]
